FAERS Safety Report 10143657 (Version 1)
Quarter: 2014Q2

REPORT INFORMATION
  Report Type: Spontaneous
  Country: US (occurrence: US)
  Receive Date: 20140430
  Receipt Date: 20140430
  Transmission Date: 20141212
  Serious: No
  Sender: FDA-Public Use
  Company Number: US-PFIZER INC-2014117715

PATIENT
  Age: 70 Year
  Sex: Female
  Weight: 61.68 kg

DRUGS (9)
  1. INLYTA [Suspect]
     Dosage: 5 MG, 2X/DAY
     Route: 048
  2. AMLODIPINE [Concomitant]
     Dosage: 5 MG, UNK
  3. SYNTHROID [Concomitant]
     Dosage: 100 UG, UNK
  4. ATENOLOL [Concomitant]
     Dosage: 25 MG, UNK
  5. CHLORTHALIDONE [Concomitant]
     Dosage: 25 MG, UNK
  6. NYSTATIN [Concomitant]
     Dosage: UNK
  7. LOSARTAN POTASSIUM [Concomitant]
     Dosage: 25 MG, UNK
  8. ORABASE [Concomitant]
     Dosage: UNK
  9. ASPIRIN [Concomitant]
     Dosage: 81 MG, UNK

REACTIONS (6)
  - Blood pressure increased [Unknown]
  - Dysphonia [Unknown]
  - Constipation [Unknown]
  - Gingival pain [Unknown]
  - Fatigue [Unknown]
  - Hypothyroidism [Unknown]
